FAERS Safety Report 14452828 (Version 1)
Quarter: 2018Q1

REPORT INFORMATION
  Report Type: Spontaneous
  Country: US (occurrence: US)
  Receive Date: 20180129
  Receipt Date: 20180129
  Transmission Date: 20180509
  Serious: No
  Sender: FDA-Public Use
  Company Number: US-DUCHESNAY INC.-2040950

PATIENT
  Age: 27 Year
  Sex: Female

DRUGS (2)
  1. REGLAN [Concomitant]
     Active Substance: METOCLOPRAMIDE HYDROCHLORIDE
  2. DICLEGIS [Suspect]
     Active Substance: DOXYLAMINE SUCCINATE\PYRIDOXINE HYDROCHLORIDE
     Indication: HYPEREMESIS GRAVIDARUM
     Route: 048
     Dates: start: 2018

REACTIONS (2)
  - Off label use [Not Recovered/Not Resolved]
  - Drug effect incomplete [Not Recovered/Not Resolved]
